FAERS Safety Report 11031720 (Version 1)
Quarter: 2015Q2

REPORT INFORMATION
  Report Type: Spontaneous
  Country: US (occurrence: US)
  Receive Date: 20150415
  Receipt Date: 20150415
  Transmission Date: 20150821
  Serious: No
  Sender: FDA-Public Use
  Company Number: US-009507513-1504USA014706

PATIENT
  Sex: Female

DRUGS (1)
  1. NEXPLANON [Suspect]
     Active Substance: ETONOGESTREL
     Indication: CONTRACEPTION
     Dosage: THE ROD IS STILL IN THE PATIENT^S ARM
     Route: 059

REACTIONS (3)
  - Incorrect route of drug administration [Unknown]
  - Device deployment issue [Unknown]
  - No adverse event [Unknown]
